FAERS Safety Report 25719432 (Version 1)
Quarter: 2025Q3

REPORT INFORMATION
  Report Type: Report from Study
  Country: EU (occurrence: EU)
  Receive Date: 20250824
  Receipt Date: 20250824
  Transmission Date: 20251020
  Serious: Yes (Death, Other)
  Sender: ABBVIE
  Company Number: EU-JNJFOC-20250820571

PATIENT

DRUGS (4)
  1. IMBRUVICA [Suspect]
     Active Substance: IBRUTINIB
     Indication: Mantle cell lymphoma refractory
     Route: 048
  2. METHOTREXATE [Suspect]
     Active Substance: METHOTREXATE
     Indication: Mantle cell lymphoma refractory
     Route: 065
  3. RITUXIMAB [Suspect]
     Active Substance: RITUXIMAB
     Indication: Mantle cell lymphoma refractory
     Route: 065
  4. LENALIDOMIDE [Suspect]
     Active Substance: LENALIDOMIDE
     Indication: Mantle cell lymphoma
     Route: 065

REACTIONS (17)
  - Respiratory failure [Fatal]
  - Infection [Fatal]
  - Atrial fibrillation [Unknown]
  - Enterococcal infection [Unknown]
  - Central nervous system haemorrhage [Unknown]
  - Haemorrhage [Unknown]
  - Cardiac failure [Unknown]
  - Syncope [Unknown]
  - Pseudomonas infection [Unknown]
  - Aspergillus infection [Unknown]
  - Skin haemorrhage [Unknown]
  - Pneumonia [Unknown]
  - Candida infection [Unknown]
  - Enterobacter infection [Unknown]
  - Treatment failure [Unknown]
  - Acute myeloid leukaemia [Fatal]
  - Gastrointestinal haemorrhage [Fatal]
